FAERS Safety Report 8150647-4 (Version None)
Quarter: 2012Q1

REPORT INFORMATION
  Report Type: 
  Country: None (occurrence: None)
  Receive Date: 20120220
  Receipt Date: 20120214
  Transmission Date: 20120608
  Serious: Yes (Hospitalization, Other)
  Sender: FDA-Public Use
  Company Number: US-BAYER-200934532NA

PATIENT
  Age: 18 Year
  Sex: Female
  Weight: 58.957 kg

DRUGS (7)
  1. SYNTHROID [Concomitant]
     Dosage: 50 MCG/24HR, QD
     Dates: start: 20000101
  2. LAMICTAL [Concomitant]
     Dosage: 50 MG, QD
  3. CYMBALTA [Concomitant]
     Dosage: 60 MG, QD
  4. LORAZEPAM [Concomitant]
     Dosage: 0.5 MG, UNK
     Dates: start: 20090131
  5. YAZ [Suspect]
     Indication: MENSTRUATION IRREGULAR
     Dosage: UNK
     Dates: start: 20081201, end: 20090401
  6. LEXAPRO [Concomitant]
     Dosage: 20 MG, UNK
     Dates: start: 20090131
  7. ABILIFY [Concomitant]
     Dosage: 25 MG, QD

REACTIONS (2)
  - THROMBOSIS [None]
  - PULMONARY EMBOLISM [None]
